FAERS Safety Report 4553842-6 (Version None)
Quarter: 2005Q1

REPORT INFORMATION
  Report Type: 
  Country: None (occurrence: None)
  Receive Date: 20050111
  Receipt Date: 20050111
  Transmission Date: 20050727
  Serious: No
  Sender: FDA-Public Use
  Company Number: None

PATIENT
  Age: 85 Year
  Sex: Male
  Weight: 63.5036 kg

DRUGS (1)
  1. FORTEO [Suspect]
     Indication: OSTEOPOROSIS
     Dosage: INTRAMUSCU
     Dates: start: 20040101, end: 20041215

REACTIONS (2)
  - BENIGN NEOPLASM OF SKIN [None]
  - CONDITION AGGRAVATED [None]
